FAERS Safety Report 19130307 (Version 2)
Quarter: 2021Q2

REPORT INFORMATION
  Report Type: Spontaneous
  Country: SE (occurrence: SE)
  Receive Date: 20210414
  Receipt Date: 20210507
  Transmission Date: 20210717
  Serious: No
  Sender: FDA-Public Use
  Company Number: SE-JNJFOC-20210342386

PATIENT
  Sex: Male

DRUGS (25)
  1. TREVICTA [Suspect]
     Active Substance: PALIPERIDONE PALMITATE
  2. TREVICTA [Suspect]
     Active Substance: PALIPERIDONE PALMITATE
  3. TREVICTA [Suspect]
     Active Substance: PALIPERIDONE PALMITATE
  4. TREVICTA [Suspect]
     Active Substance: PALIPERIDONE PALMITATE
  5. TREVICTA [Suspect]
     Active Substance: PALIPERIDONE PALMITATE
  6. TREVICTA [Suspect]
     Active Substance: PALIPERIDONE PALMITATE
  7. TREVICTA [Suspect]
     Active Substance: PALIPERIDONE PALMITATE
  8. TREVICTA [Suspect]
     Active Substance: PALIPERIDONE PALMITATE
  9. TREVICTA [Suspect]
     Active Substance: PALIPERIDONE PALMITATE
  10. TREVICTA [Suspect]
     Active Substance: PALIPERIDONE PALMITATE
     Indication: PSYCHOTIC SYMPTOM
     Route: 030
  11. TREVICTA [Suspect]
     Active Substance: PALIPERIDONE PALMITATE
  12. KLOZAPIN [Concomitant]
     Active Substance: CLOZAPINE
  13. TREVICTA [Suspect]
     Active Substance: PALIPERIDONE PALMITATE
  14. TREVICTA [Suspect]
     Active Substance: PALIPERIDONE PALMITATE
  15. TREVICTA [Suspect]
     Active Substance: PALIPERIDONE PALMITATE
  16. TREVICTA [Suspect]
     Active Substance: PALIPERIDONE PALMITATE
  17. TREVICTA [Suspect]
     Active Substance: PALIPERIDONE PALMITATE
  18. TREVICTA [Suspect]
     Active Substance: PALIPERIDONE PALMITATE
  19. TREVICTA [Suspect]
     Active Substance: PALIPERIDONE PALMITATE
  20. TREVICTA [Suspect]
     Active Substance: PALIPERIDONE PALMITATE
  21. TREVICTA [Suspect]
     Active Substance: PALIPERIDONE PALMITATE
     Indication: PSYCHOTIC SYMPTOM
     Dosage: THE INJECTION WAS ON MONDAY, MARCH 22ND. HAS BEEN ON IT BEFORE (AT LEAST SINCE 2017)
     Route: 030
  22. TREVICTA [Suspect]
     Active Substance: PALIPERIDONE PALMITATE
  23. TREVICTA [Suspect]
     Active Substance: PALIPERIDONE PALMITATE
  24. TREVICTA [Suspect]
     Active Substance: PALIPERIDONE PALMITATE
  25. TREVICTA [Suspect]
     Active Substance: PALIPERIDONE PALMITATE

REACTIONS (3)
  - Incorrect dose administered [Unknown]
  - Needle issue [Unknown]
  - Product physical consistency issue [Unknown]
